FAERS Safety Report 5087481-8 (Version None)
Quarter: 2006Q3

REPORT INFORMATION
  Report Type: 
  Country: None (occurrence: None)
  Receive Date: 20060824
  Receipt Date: 19980219
  Transmission Date: 20061208
  Serious: Yes (Life-Threatening, Other)
  Sender: FDA-Public Use
  Company Number: 1998AU02468

PATIENT
  Age: 16 Year
  Sex: Female
  Weight: 60 kg

DRUGS (11)
  1. BUPIVACAINE [Suspect]
     Dosage: DOSE: 22 MG TOTAL DAILY DOSE: 22 MG
     Route: 058
  2. L-CARNITINE [Concomitant]
     Indication: ACIDOSIS
     Route: 048
  3. DESFLURANE [Concomitant]
     Indication: GENERAL ANAESTHESIA
     Route: 055
  4. EPINEPHRINE [Concomitant]
     Dosage: DOSE: *300 MCG TOTAL DAILY DOSE: *300 MCG
     Route: 058
  5. FENTANYL [Concomitant]
     Indication: GENERAL ANAESTHESIA
     Route: 065
  6. GLYCINE HCL [Concomitant]
     Indication: ACIDOSIS
     Route: 048
  7. NITROUS OXIDE W/ OXYGEN [Concomitant]
     Indication: GENERAL ANAESTHESIA
     Route: 055
  8. OXYGEN [Concomitant]
     Indication: GENERAL ANAESTHESIA
     Dosage: DOSE: 100 %
     Route: 055
  9. RINGER'S [Concomitant]
     Route: 058
  10. THIOPENTAL SODIUM [Concomitant]
     Indication: GENERAL ANAESTHESIA
     Route: 065
  11. VECURONIUM BROMIDE [Concomitant]
     Indication: GENERAL ANAESTHESIA
     Route: 065

REACTIONS (6)
  - BRADYCARDIA [None]
  - ELECTROCARDIOGRAM QT PROLONGED [None]
  - HYPOTENSION [None]
  - NODAL ARRHYTHMIA [None]
  - VENTRICULAR ARRHYTHMIA [None]
  - VENTRICULAR DYSFUNCTION [None]
